FAERS Safety Report 21022553 (Version 1)
Quarter: 2022Q2

REPORT INFORMATION
  Report Type: Spontaneous
  Country: US (occurrence: None)
  Receive Date: 20220629
  Receipt Date: 20220629
  Transmission Date: 20220720
  Serious: Yes (Disabling)
  Sender: FDA-Public Use
  Company Number: None

PATIENT
  Age: 28 Year
  Sex: Female
  Weight: 68.4 kg

DRUGS (1)
  1. CIPROFLOXACIN [Suspect]
     Active Substance: CIPROFLOXACIN
     Indication: Urinary tract infection
     Dosage: OTHER QUANTITY : 1 TABLET(S);?FREQUENCY : EVERY 12 HOURS;?
     Route: 048
     Dates: start: 20220530, end: 20220604

REACTIONS (7)
  - Anxiety [None]
  - Blood pressure increased [None]
  - Heart rate increased [None]
  - Feeling abnormal [None]
  - Hypoaesthesia [None]
  - Insomnia [None]
  - Decreased appetite [None]

NARRATIVE: CASE EVENT DATE: 20220604
